FAERS Safety Report 18218139 (Version 1)
Quarter: 2020Q3

REPORT INFORMATION
  Report Type: Spontaneous
  Country: FR (occurrence: FR)
  Receive Date: 20200901
  Receipt Date: 20200901
  Transmission Date: 20201103
  Serious: Yes (Other)
  Sender: FDA-Public Use
  Company Number: FR-MYLANLABS-2020M1074761

PATIENT
  Age: 3 Year
  Sex: Female
  Weight: 13.3 kg

DRUGS (1)
  1. IBUPROFEN. [Suspect]
     Active Substance: IBUPROFEN
     Indication: CLAVICLE FRACTURE
     Dosage: 1 DOSAGE FORM, TOTAL
     Route: 048
     Dates: start: 20200610, end: 20200610

REACTIONS (2)
  - Angioedema [Recovered/Resolved]
  - Sneezing [Recovered/Resolved]

NARRATIVE: CASE EVENT DATE: 20200610
